FAERS Safety Report 10151688 (Version 2)
Quarter: 2014Q2

REPORT INFORMATION
  Report Type: Report from Study
  Country: CN (occurrence: CN)
  Receive Date: 20140505
  Receipt Date: 20140505
  Transmission Date: 20141212
  Serious: Yes (Death)
  Sender: FDA-Public Use
  Company Number: CN-AMGEN-CHNCT2014022438

PATIENT
  Age: 68 Year
  Sex: Male

DRUGS (6)
  1. DARBEPOETIN ALFA [Suspect]
     Indication: NEPHROGENIC ANAEMIA
     Dosage: 60 MUG, QWK
     Route: 042
     Dates: start: 20130916, end: 20140323
  2. NIFEDIPINE [Concomitant]
     Dosage: 30 MG, BID
     Route: 065
     Dates: start: 20140130
  3. BENAZEPRIL [Concomitant]
     Dosage: 10 MG, BID
     Route: 065
     Dates: start: 20140130
  4. AMLODIPINE BESYLATE [Concomitant]
     Dosage: 5 MG, BID
     Route: 065
     Dates: start: 20140227
  5. CARVEDILOL [Concomitant]
     Dosage: 12.5 MG, BID
     Route: 065
     Dates: start: 20130826
  6. NIFSREX [Concomitant]
     Dosage: 150 MG, QD
     Route: 065
     Dates: start: 20140224

REACTIONS (1)
  - Sudden death [Fatal]
